FAERS Safety Report 5466749-7 (Version None)
Quarter: 2007Q3

REPORT INFORMATION
  Report Type: 
  Country: None (occurrence: None)
  Receive Date: 20070925
  Receipt Date: 20070911
  Transmission Date: 20080115
  Serious: Yes (Hospitalization, Other)
  Sender: FDA-Public Use
  Company Number: US-ELI_LILLY_AND_COMPANY-US200706002963

PATIENT
  Age: 40 Year
  Sex: Male
  Weight: 86.167 kg

DRUGS (7)
  1. ZYPREXA [Suspect]
     Indication: SCHIZOPHRENIA
     Dosage: 10 MG, UNK
     Dates: start: 19980601
  2. ZYPREXA [Suspect]
     Dosage: 15 MG, UNK
     Dates: start: 19890101
  3. RISPERIDONE [Concomitant]
  4. SYMBYAX [Concomitant]
     Dates: start: 19960101
  5. ABILIFY [Concomitant]
     Dates: start: 20040101, end: 20040101
  6. ABILIFY [Concomitant]
     Dates: start: 20060301, end: 20060401
  7. ZIPRASIDONE HCL [Concomitant]
     Dates: start: 20040801, end: 20040901

REACTIONS (5)
  - DIABETES MELLITUS [None]
  - MENTAL DISORDER [None]
  - PANCREATITIS [None]
  - SOMNOLENCE [None]
  - WEIGHT INCREASED [None]
